FAERS Safety Report 4479409-6 (Version None)
Quarter: 2004Q4

REPORT INFORMATION
  Report Type: 
  Country: None (occurrence: None)
  Receive Date: 20041015
  Receipt Date: 20040927
  Transmission Date: 20050328
  Serious: Yes (Death)
  Sender: FDA-Public Use
  Company Number: 2004236021US

PATIENT
  Age: 34 Year

DRUGS (3)
  1. XANAX [Suspect]
  2. HYDROCODONE W/ACETAMINOPHEN (PARACETAMOL, HYDROCODONE BITARTRATE) [Suspect]
  3. ETHANOL (ETHANOL) [Suspect]

REACTIONS (2)
  - CARDIO-RESPIRATORY ARREST [None]
  - MULTIPLE DRUG OVERDOSE INTENTIONAL [None]
